FAERS Safety Report 21839195 (Version 1)
Quarter: 2023Q1

REPORT INFORMATION
  Report Type: Spontaneous
  Country: US (occurrence: US)
  Receive Date: 20230109
  Receipt Date: 20230109
  Transmission Date: 20230418
  Serious: No
  Sender: FDA-Public Use
  Company Number: US-PFIZER INC-PV202300001417

PATIENT
  Age: 62 Year
  Sex: Female

DRUGS (1)
  1. XELJANZ XR [Suspect]
     Active Substance: TOFACITINIB CITRATE
     Dosage: 11 MG

REACTIONS (5)
  - Headache [Recovering/Resolving]
  - Myalgia [Recovering/Resolving]
  - Abdominal discomfort [Recovering/Resolving]
  - Blood cholesterol increased [Recovering/Resolving]
  - Heart rate increased [Recovering/Resolving]
